FAERS Safety Report 6399072-7 (Version None)
Quarter: 2009Q4

REPORT INFORMATION
  Report Type: 
  Country: None (occurrence: None)
  Receive Date: 20091008
  Receipt Date: 20090925
  Transmission Date: 20100525
  Serious: Yes (Hospitalization)
  Sender: FDA-Public Use
  Company Number: 8052664

PATIENT
  Age: 59 Year
  Sex: Female

DRUGS (7)
  1. KEPPRA [Suspect]
     Indication: CONVULSION
     Dosage: 250 MG PO
     Route: 048
     Dates: start: 20090201, end: 20090425
  2. FENTANYL-100 [Suspect]
     Indication: BACK DISORDER
     Dosage: 25 MCG TRD
     Dates: start: 20090305, end: 20090909
  3. FENTANYL-100 [Suspect]
     Indication: BACK DISORDER
     Dosage: 25 MCG TRD
     Dates: start: 20090910
  4. DILANTIN [Suspect]
     Indication: CONVULSION
     Dosage: 60 MG 2/D PO
     Route: 048
     Dates: start: 20090201, end: 20090425
  5. BACLOFEN [Suspect]
     Dosage: 5 MG 4/D PO
     Route: 048
     Dates: start: 20060101, end: 20090805
  6. BACLOFEN [Suspect]
     Dosage: 5 MG 4/D PO
     Route: 048
     Dates: start: 20090806
  7. LAMICTAL [Suspect]
     Indication: CONVULSION
     Dosage: 100 MG 2/D PO
     Route: 048
     Dates: start: 20090201

REACTIONS (8)
  - BLOOD ELECTROLYTES DECREASED [None]
  - CONFUSIONAL STATE [None]
  - CONVULSION [None]
  - HYPERHIDROSIS [None]
  - LOSS OF CONSCIOUSNESS [None]
  - THERAPEUTIC AGENT TOXICITY [None]
  - URINARY TRACT INFECTION [None]
  - VENTRICULAR TACHYCARDIA [None]
